FAERS Safety Report 8474624-9 (Version None)
Quarter: 2012Q2

REPORT INFORMATION
  Report Type: 
  Country: None (occurrence: None)
  Receive Date: 20120628
  Receipt Date: 20120619
  Transmission Date: 20120825
  Serious: Yes (Hospitalization)
  Sender: FDA-Public Use
  Company Number: JP-JNJFOC-20120612583

PATIENT
  Age: 76 Year
  Sex: Male
  Weight: 60 kg

DRUGS (8)
  1. DECADRON [Concomitant]
     Route: 048
     Dates: start: 20120514, end: 20120605
  2. LEVOFLOXACIN [Suspect]
     Route: 065
     Dates: start: 20120604
  3. DECADRON [Concomitant]
     Indication: MULTIPLE MYELOMA
     Route: 048
     Dates: start: 20120306, end: 20120317
  4. VELCADE [Suspect]
     Route: 042
     Dates: start: 20120514, end: 20120604
  5. LEVOFLOXACIN [Suspect]
     Indication: C-REACTIVE PROTEIN INCREASED
     Route: 065
     Dates: start: 20120416
  6. VELCADE [Suspect]
     Route: 042
     Dates: start: 20120306, end: 20120316
  7. DECADRON [Concomitant]
     Route: 048
     Dates: start: 20120327, end: 20120418
  8. VELCADE [Suspect]
     Indication: MULTIPLE MYELOMA
     Route: 042
     Dates: start: 20120327, end: 20120417

REACTIONS (4)
  - C-REACTIVE PROTEIN INCREASED [None]
  - LUNG DISORDER [None]
  - OFF LABEL USE [None]
  - HYPOTENSION [None]
